FAERS Safety Report 9797481 (Version 2)
Quarter: 2014Q1

REPORT INFORMATION
  Report Type: Report from Study
  Country: US (occurrence: US)
  Receive Date: 20140106
  Receipt Date: 20140328
  Transmission Date: 20141002
  Serious: Yes (Death, Other)
  Sender: FDA-Public Use
  Company Number: PHEH2013US026471

PATIENT
  Age: 80 Year
  Sex: Female
  Weight: 78.6 kg

DRUGS (6)
  1. TASIGNA [Suspect]
     Indication: CHRONIC MYELOID LEUKAEMIA
     Dosage: 200 MG, BID
     Route: 048
     Dates: start: 20100421, end: 20131211
  2. BETA BLOCKING AGENTS [Concomitant]
  3. WARFARIN [Concomitant]
     Indication: PULMONARY EMBOLISM
     Dosage: 6 MG, QHS
     Route: 048
     Dates: start: 20080109, end: 20131211
  4. ATENOLOL [Concomitant]
     Indication: HYPERTENSION
     Dosage: 50 MG, QD
     Route: 048
  5. ATORVASTATIN [Concomitant]
     Indication: HYPERCHOLESTEROLAEMIA
     Dosage: 80 MG, QD
     Route: 048
  6. LOSARTAN [Concomitant]
     Indication: HYPERTENSION
     Dosage: 100 MG, QD
     Route: 048

REACTIONS (5)
  - Death [Fatal]
  - Haemorrhage [Unknown]
  - Fall [Unknown]
  - Joint injury [Unknown]
  - Weight bearing difficulty [Unknown]
